FAERS Safety Report 17225271 (Version 1)
Quarter: 2019Q4

REPORT INFORMATION
  Report Type: Spontaneous
  Country: US (occurrence: US)
  Receive Date: 20191209
  Receipt Date: 20191209
  Transmission Date: 20200122
  Serious: Yes (Hospitalization)
  Sender: FDA-Public Use
  Company Number: None

PATIENT
  Age: 72 Year
  Sex: Male
  Weight: 108 kg

DRUGS (1)
  1. DULAGLUTIDE (DULAGLUTIDE 1.5MG/0.5ML INJ, SOLN PEN) [Suspect]
     Active Substance: DULAGLUTIDE
     Indication: DIABETES MELLITUS
     Dates: start: 20180420

REACTIONS (6)
  - Abdominal pain upper [None]
  - Decreased appetite [None]
  - Cholecystitis [None]
  - Murphy^s sign positive [None]
  - Cholecystitis infective [None]
  - Nausea [None]

NARRATIVE: CASE EVENT DATE: 20190924
